FAERS Safety Report 16820582 (Version 1)
Quarter: 2019Q3

REPORT INFORMATION
  Report Type: Spontaneous
  Country: GB (occurrence: GB)
  Receive Date: 20190918
  Receipt Date: 20190918
  Transmission Date: 20191005
  Serious: Yes (Disabling, Other)
  Sender: FDA-Public Use
  Company Number: GB-MICRO LABS LIMITED-ML2019-02482

PATIENT
  Age: 53 Year
  Sex: Male
  Weight: 140 kg

DRUGS (9)
  1. VITAMIN D3 10000 IU/G [Concomitant]
  2. NITRAZEPAM [Concomitant]
     Active Substance: NITRAZEPAM
  3. VENTOLIN [Concomitant]
     Active Substance: ALBUTEROL SULFATE
  4. METFORMIN [Concomitant]
     Active Substance: METFORMIN HYDROCHLORIDE
  5. LOSARTAN POTASSIUM. [Concomitant]
     Active Substance: LOSARTAN POTASSIUM
  6. SPIRIVA [Concomitant]
     Active Substance: TIOTROPIUM BROMIDE MONOHYDRATE
  7. SERETIDE [Concomitant]
     Active Substance: FLUTICASONE PROPIONATE\SALMETEROL XINAFOATE
  8. SIMVASTATIN. [Suspect]
     Active Substance: SIMVASTATIN
     Indication: HIGH DENSITY LIPOPROTEIN INCREASED
     Route: 048
  9. SENOKOT [Concomitant]
     Active Substance: SENNOSIDES

REACTIONS (2)
  - Blindness transient [Not Recovered/Not Resolved]
  - Visual impairment [Not Recovered/Not Resolved]

NARRATIVE: CASE EVENT DATE: 20160101
